FAERS Safety Report 8276497-6 (Version None)
Quarter: 2012Q2

REPORT INFORMATION
  Report Type: 
  Country: None (occurrence: None)
  Receive Date: 20120412
  Receipt Date: 20120405
  Transmission Date: 20120825
  Serious: Yes (Hospitalization)
  Sender: FDA-Public Use
  Company Number: GR-B.I. PHARMACEUTICALS,INC./RIDGEFIELD-2012-EU-01981GB

PATIENT
  Age: 65 Year
  Sex: Female

DRUGS (2)
  1. PRADAXA [Suspect]
     Indication: ATRIAL FIBRILLATION
     Dosage: 220 MG
     Route: 048
     Dates: start: 20120301, end: 20120301
  2. UNSPECIFIED ANTI-HYPERTENSIVE DRUG [Concomitant]
     Indication: HYPERTENSION

REACTIONS (1)
  - PANCREATITIS [None]
